FAERS Safety Report 11595320 (Version 1)
Quarter: 2015Q4

REPORT INFORMATION
  Report Type: Report from Study
  Country: CA (occurrence: CA)
  Receive Date: 20151006
  Receipt Date: 20151006
  Transmission Date: 20160304
  Serious: Yes (Other)
  Sender: FDA-Public Use
  Company Number: CA-ROCHE-1237777

PATIENT
  Age: 56 Year
  Sex: Male
  Weight: 96.6 kg

DRUGS (21)
  1. RITUXAN [Suspect]
     Active Substance: RITUXIMAB
     Indication: RHEUMATOID ARTHRITIS
  2. PANTOPRAZOLE [Concomitant]
     Active Substance: PANTOPRAZOLE SODIUM
  3. OXYNEO [Concomitant]
     Active Substance: OXYCODONE
  4. RITUXAN [Suspect]
     Active Substance: RITUXIMAB
     Indication: ALLERGIC GRANULOMATOUS ANGIITIS
     Dosage: MOST RECENT RITUXIMAB DOSE WAS ON 13/FEB/2013.
     Route: 042
     Dates: start: 20130130
  5. PLAQUENIL [Concomitant]
     Active Substance: HYDROXYCHLOROQUINE SULFATE
  6. EFFEXOR [Concomitant]
     Active Substance: VENLAFAXINE HYDROCHLORIDE
  7. ACETAMINOPHEN. [Concomitant]
     Active Substance: ACETAMINOPHEN
     Indication: PREMEDICATION
     Route: 048
     Dates: start: 20130130
  8. DIPHENHYDRAMINE HCL [Concomitant]
     Active Substance: DIPHENHYDRAMINE HYDROCHLORIDE
     Indication: PREMEDICATION
     Route: 048
     Dates: start: 20130130
  9. RISEDRONATE [Concomitant]
     Active Substance: RISEDRONATE SODIUM
  10. AMITRIPTYLINE [Concomitant]
     Active Substance: AMITRIPTYLINE
  11. METHOTREXATE [Suspect]
     Active Substance: METHOTREXATE
     Indication: PRODUCT USED FOR UNKNOWN INDICATION
     Route: 065
  12. ORENCIA [Suspect]
     Active Substance: ABATACEPT
     Indication: PRODUCT USED FOR UNKNOWN INDICATION
     Route: 065
  13. AZATHIOPRINE. [Concomitant]
     Active Substance: AZATHIOPRINE
  14. COUMADIN [Concomitant]
     Active Substance: WARFARIN SODIUM
  15. RITUXAN [Suspect]
     Active Substance: RITUXIMAB
     Indication: VASCULITIS
  16. LYRICA [Suspect]
     Active Substance: PREGABALIN
     Indication: PRODUCT USED FOR UNKNOWN INDICATION
     Route: 065
  17. PREDNISONE. [Concomitant]
     Active Substance: PREDNISONE
  18. METHYLPREDNISOLONE. [Concomitant]
     Active Substance: METHYLPREDNISOLONE
     Route: 042
     Dates: start: 20130130
  19. OXYCODONE [Concomitant]
     Active Substance: OXYCODONE
  20. NIFEDIPINE. [Concomitant]
     Active Substance: NIFEDIPINE
  21. METFORMIN [Concomitant]
     Active Substance: METFORMIN HYDROCHLORIDE
     Route: 065

REACTIONS (6)
  - Drug ineffective [Unknown]
  - Lung neoplasm [Unknown]
  - Off label use [Unknown]
  - Vasculitis [Not Recovered/Not Resolved]
  - Herpes zoster [Unknown]
  - Hepatic enzyme increased [Unknown]

NARRATIVE: CASE EVENT DATE: 201507
